FAERS Safety Report 4954184-7 (Version None)
Quarter: 2006Q1

REPORT INFORMATION
  Report Type: 
  Country: None (occurrence: None)
  Receive Date: 20060327
  Receipt Date: 20050810
  Transmission Date: 20060701
  Serious: Yes (Hospitalization, Disabling, Other)
  Sender: FDA-Public Use
  Company Number: US-MERCK-0508USA01942

PATIENT
  Age: 76 Year
  Sex: Male
  Weight: 74 kg

DRUGS (14)
  1. VIOXX [Suspect]
     Indication: ARTHRITIS
     Route: 048
     Dates: start: 20000101, end: 20040901
  2. VIOXX [Suspect]
     Route: 048
     Dates: start: 20000101, end: 20040901
  3. VIOXX [Suspect]
     Indication: NECK PAIN
     Route: 048
     Dates: start: 20000101, end: 20040901
  4. VIOXX [Suspect]
     Route: 048
     Dates: start: 20000101, end: 20040901
  5. ZOCOR [Concomitant]
     Route: 048
  6. ASPIRIN [Concomitant]
     Route: 065
  7. NITROGLYCERIN [Concomitant]
     Route: 065
  8. CAPOTEN [Concomitant]
     Route: 065
  9. LOPRESSOR [Concomitant]
     Route: 065
  10. IMDUR [Concomitant]
     Route: 065
  11. RESTORIL [Concomitant]
     Route: 065
  12. LOVENOX [Concomitant]
     Route: 065
  13. VIOXX [Concomitant]
     Route: 048
     Dates: start: 20000101, end: 20040901
  14. VIOXX [Concomitant]
     Route: 048
     Dates: start: 20000101, end: 20040901

REACTIONS (18)
  - AKINESIA [None]
  - AMNESIA [None]
  - AORTIC VALVE SCLEROSIS [None]
  - CARDIOMYOPATHY [None]
  - CORONARY ARTERY DISEASE [None]
  - CORONARY ARTERY STENOSIS [None]
  - DILATATION ATRIAL [None]
  - HYPOTENSION [None]
  - INTERMITTENT CLAUDICATION [None]
  - MITRAL VALVE INCOMPETENCE [None]
  - MYOCARDIAL INFARCTION [None]
  - MYOCARDIAL ISCHAEMIA [None]
  - OVERDOSE [None]
  - RENAL FAILURE [None]
  - SLEEP DISORDER [None]
  - VASCULAR CALCIFICATION [None]
  - VENTRICULAR HYPERTROPHY [None]
  - WRIST FRACTURE [None]
